FAERS Safety Report 7096872-5 (Version None)
Quarter: 2010Q4

REPORT INFORMATION
  Report Type: 
  Country: None (occurrence: None)
  Receive Date: 20101111
  Receipt Date: 20100125
  Transmission Date: 20110411
  Serious: No
  Sender: FDA-Public Use
  Company Number: US-KINGPHARMUSA00001-K201000090

PATIENT
  Age: 69 Year
  Sex: Male
  Weight: 87.075 kg

DRUGS (3)
  1. FLECTOR [Suspect]
     Indication: NECK PAIN
     Dosage: UNK PATCH, UNK
     Route: 061
     Dates: start: 20100115, end: 20100121
  2. FLECTOR [Suspect]
     Indication: MUSCULOSKELETAL PAIN
  3. FLECTOR [Suspect]
     Indication: BACK PAIN

REACTIONS (1)
  - DRUG INEFFECTIVE [None]
